FAERS Safety Report 6790494-9 (Version None)
Quarter: 2010Q2

REPORT INFORMATION
  Report Type: 
  Country: None (occurrence: None)
  Receive Date: 20100624
  Receipt Date: 20100618
  Transmission Date: 20101027
  Serious: Yes (Death)
  Sender: FDA-Public Use
  Company Number: AR-ROCHE-708522

PATIENT
  Age: 77 Year
  Sex: Male

DRUGS (1)
  1. CAPECITABINE [Suspect]
     Indication: COLON CANCER
     Dosage: FREQUENCY : 1-15 DAY
     Route: 048
     Dates: start: 20090506, end: 20100217

REACTIONS (2)
  - ENTERITIS INFECTIOUS [None]
  - MALIGNANT NEOPLASM PROGRESSION [None]
